FAERS Safety Report 16371266 (Version 1)
Quarter: 2019Q2

REPORT INFORMATION
  Report Type: Spontaneous
  Country: BE (occurrence: BE)
  Receive Date: 20190530
  Receipt Date: 20190530
  Transmission Date: 20190711
  Serious: Yes (Other)
  Sender: FDA-Public Use
  Company Number: PHHY2019BE122482

PATIENT
  Sex: Female

DRUGS (1)
  1. AMOXICILLINE BEXAL [Suspect]
     Active Substance: AMOXICILLIN
     Indication: PRODUCT USED FOR UNKNOWN INDICATION
     Dosage: 1 DF, QD
     Route: 048

REACTIONS (3)
  - Chest pain [Unknown]
  - Sensorimotor disorder [Unknown]
  - Acute respiratory failure [Unknown]
